FAERS Safety Report 8135724-6 (Version None)
Quarter: 2012Q1

REPORT INFORMATION
  Report Type: 
  Country: None (occurrence: None)
  Receive Date: 20120214
  Receipt Date: 20120202
  Transmission Date: 20120608
  Serious: Yes (Hospitalization)
  Sender: FDA-Public Use
  Company Number: US-ELI_LILLY_AND_COMPANY-US201007006535

PATIENT
  Sex: Male
  Weight: 50.8 kg

DRUGS (3)
  1. OLANZAPINE [Suspect]
     Indication: BIPOLAR I DISORDER
     Dosage: 7.5 MG, DAILY (1/D)
     Route: 048
     Dates: start: 20100325, end: 20100726
  2. OLANZAPINE [Suspect]
     Dosage: 5 MG, UNK
     Dates: start: 20100730
  3. LITHIUM                            /00033701/ [Concomitant]
     Indication: BIPOLAR DISORDER
     Dosage: 300 MG, 2/D
     Route: 048
     Dates: start: 20100720

REACTIONS (1)
  - SUICIDAL IDEATION [None]
